FAERS Safety Report 6179030-8 (Version None)
Quarter: 2009Q2

REPORT INFORMATION
  Report Type: 
  Country: None (occurrence: None)
  Receive Date: 20090505
  Receipt Date: 20090428
  Transmission Date: 20091009
  Serious: Yes (Other)
  Sender: FDA-Public Use
  Company Number: US-ASTRAZENECA-2008UW28588

PATIENT
  Age: 22927 Day
  Sex: Male
  Weight: 81.6 kg

DRUGS (4)
  1. CRESTOR [Suspect]
     Route: 048
     Dates: start: 20081120, end: 20090310
  2. PLAVIX [Concomitant]
     Indication: CARDIAC DISORDER
  3. ASPIRIN [Concomitant]
     Indication: CARDIAC DISORDER
  4. BYSTOLIC [Concomitant]
     Indication: CARDIAC DISORDER

REACTIONS (3)
  - CATHETERISATION CARDIAC [None]
  - PAIN IN EXTREMITY [None]
  - STENT PLACEMENT [None]
